FAERS Safety Report 8345823-1 (Version None)
Quarter: 2012Q2

REPORT INFORMATION
  Report Type: 
  Country: None (occurrence: None)
  Receive Date: 20120509
  Receipt Date: 20120502
  Transmission Date: 20120825
  Serious: Yes (Hospitalization)
  Sender: FDA-Public Use
  Company Number: GR-AMGEN-GRCSP2012027841

PATIENT
  Sex: Male
  Weight: 70 kg

DRUGS (3)
  1. VECTIBIX [Suspect]
     Indication: COLON CANCER
     Dosage: 400 MG, Q2WK
     Dates: start: 20120101, end: 20120410
  2. OXALIPLATIN [Concomitant]
     Indication: COLON CANCER
     Dosage: UNK
     Dates: start: 20120101, end: 20120410
  3. XELODA [Concomitant]
     Indication: COLON CANCER
     Dosage: UNK
     Dates: start: 20120101, end: 20120410

REACTIONS (1)
  - PNEUMONITIS [None]
